FAERS Safety Report 16189811 (Version 1)
Quarter: 2019Q2

REPORT INFORMATION
  Report Type: Spontaneous
  Country: GB (occurrence: GB)
  Receive Date: 20190412
  Receipt Date: 20190412
  Transmission Date: 20190711
  Serious: Yes (Hospitalization, Other)
  Sender: FDA-Public Use
  Company Number: GB-APOTEX-2017AP017711

PATIENT
  Age: 82 Year
  Sex: Female

DRUGS (1)
  1. ALENDRONIC ACID TABLETS [Suspect]
     Active Substance: ALENDRONIC ACID
     Indication: OSTEOPOROSIS
     Dosage: UNK
     Route: 048

REACTIONS (6)
  - Patella fracture [Recovering/Resolving]
  - Atypical fracture [Recovering/Resolving]
  - Stress fracture [Recovering/Resolving]
  - Atypical femur fracture [Recovering/Resolving]
  - Fall [Unknown]
  - Drug ineffective [Unknown]
